FAERS Safety Report 15602839 (Version 1)
Quarter: 2018Q4

REPORT INFORMATION
  Report Type: Spontaneous
  Country: ID (occurrence: ID)
  Receive Date: 20181109
  Receipt Date: 20181109
  Transmission Date: 20190205
  Serious: Yes (Other)
  Sender: FDA-Public Use
  Company Number: ID-ASTRAZENECA-2018SF36832

PATIENT
  Sex: Female

DRUGS (3)
  1. TAGRISSO [Suspect]
     Active Substance: OSIMERTINIB
     Indication: NON-SMALL CELL LUNG CANCER
     Route: 048
     Dates: start: 201809
  2. TAGRISSO [Suspect]
     Active Substance: OSIMERTINIB
     Indication: NON-SMALL CELL LUNG CANCER
     Dosage: TAKEN ALTERNATELY, 80 MG ONCE DAILY ON THE FIRST DAY, 40 MG ONCE DAILY ON THE SECOND DAY (THE PAT...
     Route: 048
     Dates: start: 201809
  3. TAGRISSO [Suspect]
     Active Substance: OSIMERTINIB
     Indication: NON-SMALL CELL LUNG CANCER
     Route: 048
     Dates: start: 201808, end: 201809

REACTIONS (5)
  - Dizziness [Unknown]
  - Paronychia [Unknown]
  - Acne [Recovering/Resolving]
  - Erythema [Recovering/Resolving]
  - Joint abscess [Unknown]

NARRATIVE: CASE EVENT DATE: 201808
